FAERS Safety Report 13093833 (Version 1)
Quarter: 2017Q1

REPORT INFORMATION
  Report Type: Spontaneous
  Country: US (occurrence: US)
  Receive Date: 20170105
  Receipt Date: 20170105
  Transmission Date: 20170428
  Serious: Yes (Hospitalization)
  Sender: FDA-Public Use
  Company Number: None

PATIENT
  Age: 55 Year
  Sex: Male
  Weight: 88.4 kg

DRUGS (2)
  1. LISINOPRIL. [Suspect]
     Active Substance: LISINOPRIL
     Dates: start: 20110629, end: 20110629
  2. LISINOPRIL. [Suspect]
     Active Substance: LISINOPRIL
     Indication: ANGIOEDEMA
     Route: 048
     Dates: start: 20050111, end: 20110629

REACTIONS (4)
  - Swollen tongue [None]
  - Oropharyngeal swelling [None]
  - Laryngeal oedema [None]
  - Angioedema [None]

NARRATIVE: CASE EVENT DATE: 20110629
